FAERS Safety Report 5944348-8 (Version None)
Quarter: 2008Q4

REPORT INFORMATION
  Report Type: 
  Country: None (occurrence: None)
  Receive Date: 20081105
  Receipt Date: 20081022
  Transmission Date: 20090506
  Serious: Yes (Hospitalization)
  Sender: FDA-Public Use
  Company Number: 2008US002915

PATIENT
  Age: 45 Year
  Sex: Female

DRUGS (3)
  1. PROGRAF [Suspect]
     Indication: RENAL TRANSPLANT
     Dosage: /D ORAL
     Route: 048
     Dates: start: 20080910
  2. [NO SUSPECT PRODUCT] ([NO SUSPECT PRODUCT]) FORMULATION UNKNOWN [Suspect]
     Indication: RENAL TRANSPLANT
  3. PREDNISOLONE ACETATE [Concomitant]

REACTIONS (1)
  - DIABETIC KETOACIDOSIS [None]
